FAERS Safety Report 18628561 (Version 1)
Quarter: 2020Q4

REPORT INFORMATION
  Report Type: Spontaneous
  Country: GB (occurrence: GB)
  Receive Date: 20201217
  Receipt Date: 20201217
  Transmission Date: 20210114
  Serious: Yes (Other)
  Sender: FDA-Public Use
  Company Number: GB-TEVA-2020-GB-1858407

PATIENT
  Sex: Female

DRUGS (3)
  1. TEVA UK LEVOTHYROXINE [Suspect]
     Active Substance: LEVOTHYROXINE
     Indication: HYPOTHYROIDISM
     Dosage: 25 MG
     Route: 048
  2. ACCORD-UK LEVOTHYROXINE [Concomitant]
     Active Substance: LEVOTHYROXINE SODIUM ANHYDROUS
  3. ESTRADERM [Concomitant]
     Active Substance: ESTRADIOL

REACTIONS (4)
  - Mood altered [Recovered/Resolved]
  - Headache [Recovered/Resolved]
  - Nausea [Recovered/Resolved]
  - Fatigue [Recovered/Resolved]
